FAERS Safety Report 12700026 (Version 1)
Quarter: 2016Q3

REPORT INFORMATION
  Report Type: Spontaneous
  Country: US (occurrence: US)
  Receive Date: 20160830
  Receipt Date: 20160830
  Transmission Date: 20161109
  Serious: Yes (Death, Hospitalization)
  Sender: FDA-Public Use
  Company Number: US-JNJFOC-20160702490

PATIENT
  Age: 45 Year
  Sex: Male

DRUGS (1)
  1. XARELTO [Suspect]
     Active Substance: RIVAROXABAN
     Indication: DEEP VEIN THROMBOSIS
     Route: 048
     Dates: start: 20140525, end: 20140721

REACTIONS (4)
  - Gastrointestinal haemorrhage [Unknown]
  - Haemoptysis [Unknown]
  - Pulmonary embolism [Fatal]
  - Epistaxis [Unknown]

NARRATIVE: CASE EVENT DATE: 20140721
